FAERS Safety Report 7475777-1 (Version None)
Quarter: 2011Q2

REPORT INFORMATION
  Report Type: 
  Country: None (occurrence: None)
  Receive Date: 20110510
  Receipt Date: 20110510
  Transmission Date: 20111010
  Serious: Yes (Other)
  Sender: FDA-Public Use
  Company Number: None

PATIENT
  Age: 62 Year
  Sex: Male
  Weight: 79.3795 kg

DRUGS (1)
  1. ACTONEL [Suspect]
     Indication: BONE DENSITY DECREASED
     Dosage: 1 TABLET EACH MONTH PO
     Route: 048
     Dates: start: 20090101, end: 20110415

REACTIONS (3)
  - SWELLING [None]
  - PAIN IN JAW [None]
  - LOOSE TOOTH [None]
